FAERS Safety Report 20467307 (Version 1)
Quarter: 2022Q1

REPORT INFORMATION
  Report Type: Spontaneous
  Country: JP (occurrence: JP)
  Receive Date: 20220214
  Receipt Date: 20220214
  Transmission Date: 20220423
  Serious: Yes (Other)
  Sender: FDA-Public Use
  Company Number: JP-STRIDES ARCOLAB LIMITED-2022SP001235

PATIENT
  Age: 43 Year
  Sex: Male

DRUGS (8)
  1. ETOPOSIDE [Suspect]
     Active Substance: ETOPOSIDE
     Indication: Adrenocortical carcinoma
     Dosage: 100 MILLIGRAM/SQ. METER, EVERY 4 WEEKS (ON DAYS 2-4, ONE CYCLE)
     Route: 065
  2. ETOPOSIDE [Suspect]
     Active Substance: ETOPOSIDE
     Indication: Metastatic neoplasm
  3. DOXORUBICIN [Suspect]
     Active Substance: DOXORUBICIN
     Indication: Adrenocortical carcinoma
     Dosage: 40 MILLIGRAM/SQ. METER, EVERY 4 WEEKS (ON DAY 1, ONE CYCLE)
     Route: 065
  4. DOXORUBICIN [Suspect]
     Active Substance: DOXORUBICIN
     Indication: Metastatic neoplasm
  5. CISPLATIN [Suspect]
     Active Substance: CISPLATIN
     Indication: Adrenocortical carcinoma
     Dosage: 40 MILLIGRAM/SQ. METER, EVERY 4 WEEKS (ON DAYS 3 AND 4 PLUS, ONE CYCLE)
     Route: 065
  6. CISPLATIN [Suspect]
     Active Substance: CISPLATIN
     Indication: Metastatic neoplasm
  7. MITOTANE [Suspect]
     Active Substance: MITOTANE
     Indication: Adrenocortical carcinoma
     Dosage: 1500 MILLIGRAM, PER DAY CYCLICAL, REPEATED EVERY 4 WEEKS
     Route: 048
  8. MITOTANE [Suspect]
     Active Substance: MITOTANE
     Indication: Metastatic neoplasm
     Dosage: UNK UNK, CYCLICAL (PROGRESSIVELY INCREASED) REPEATED EVERY 4 WEEKS
     Route: 048

REACTIONS (3)
  - Hyperadrenocorticism [Unknown]
  - Infection [Unknown]
  - Off label use [Unknown]
